APPROVED DRUG PRODUCT: VAGIFEM
Active Ingredient: ESTRADIOL
Strength: 10MCG
Dosage Form/Route: TABLET;VAGINAL
Application: N020908 | Product #002 | TE Code: AB
Applicant: NOVO NORDISK INC
Approved: Nov 25, 2009 | RLD: Yes | RS: Yes | Type: RX